FAERS Safety Report 10414973 (Version 1)
Quarter: 2014Q2

REPORT INFORMATION
  Report Type: Spontaneous
  Country: US (occurrence: None)
  Receive Date: 20140514
  Receipt Date: 20140514
  Transmission Date: 20141212
  Serious: Yes (Hospitalization)
  Sender: FDA-Public Use
  Company Number: 107445U

PATIENT
  Sex: Male
  Weight: 117 kg

DRUGS (16)
  1. CIMZIA [Suspect]
     Indication: CROHN^S DISEASE
     Dosage: 1X/4 WEEKS SUBCUTANEOUS), (400 MG 1X/4 WEEKS SUBCUTANEOUS)
     Route: 058
     Dates: start: 20120309
  2. REMICADE [Concomitant]
  3. HUMIRA [Concomitant]
  4. METHOTREXATE [Concomitant]
  5. ALBUTEROL SULFATE [Concomitant]
  6. AZATHIOPRINE [Concomitant]
  7. DILAUDID [Concomitant]
  8. FOLIC ACID [Concomitant]
  9. METHADONE [Concomitant]
  10. METOPROLOL TARTRATE [Concomitant]
  11. MULTIVITAMIN [Concomitant]
  12. OMEPRAZOLE [Concomitant]
  13. ALBUTEROL SULFATE [Concomitant]
  14. TESTOSTERONE [Concomitant]
  15. ZYPREXA [Concomitant]
  16. WARFARIN [Concomitant]

REACTIONS (5)
  - Crohn^s disease [None]
  - Diarrhoea [None]
  - Retching [None]
  - Nausea [None]
  - Back pain [None]
